FAERS Safety Report 13250622 (Version 4)
Quarter: 2017Q4

REPORT INFORMATION
  Report Type: Spontaneous
  Country: CA (occurrence: CA)
  Receive Date: 20170219
  Receipt Date: 20171227
  Transmission Date: 20180320
  Serious: Yes (Other)
  Sender: FDA-Public Use
  Company Number: CA-CONCORDIA PHARMACEUTICALS INC.-GSH201702-001150

PATIENT
  Age: 52 Year
  Sex: Female

DRUGS (23)
  1. ARAVA [Suspect]
     Active Substance: LEFLUNOMIDE
     Route: 048
  2. ORENCIA [Suspect]
     Active Substance: ABATACEPT
     Route: 042
  3. ENBREL [Suspect]
     Active Substance: ETANERCEPT
     Indication: RHEUMATOID ARTHRITIS
     Route: 058
  4. CALCIUM [Concomitant]
     Active Substance: CALCIUM
  5. ENBREL [Suspect]
     Active Substance: ETANERCEPT
     Route: 058
     Dates: start: 20101004, end: 20110416
  6. METFORMIN [Concomitant]
     Active Substance: METFORMIN HYDROCHLORIDE
  7. ARAVA [Suspect]
     Active Substance: LEFLUNOMIDE
     Indication: RHEUMATOID ARTHRITIS
     Route: 048
     Dates: start: 2010
  8. METHOTREXATE SODIUM. [Suspect]
     Active Substance: METHOTREXATE SODIUM
     Indication: RHEUMATOID ARTHRITIS
     Route: 030
     Dates: start: 2009, end: 2014
  9. NAPROSYN [Concomitant]
     Active Substance: NAPROXEN
  10. NAPROXEN. [Concomitant]
     Active Substance: NAPROXEN
  11. VITAMIN D [Concomitant]
     Active Substance: CHOLECALCIFEROL
  12. ACTEMRA [Suspect]
     Active Substance: TOCILIZUMAB
     Route: 042
  13. PREDNISONE. [Concomitant]
     Active Substance: PREDNISONE
  14. LOZIDE [Concomitant]
     Active Substance: INDAPAMIDE
  15. PLAQUENIL [Suspect]
     Active Substance: HYDROXYCHLOROQUINE SULFATE
     Route: 048
  16. METHOTREXATE SODIUM. [Suspect]
     Active Substance: METHOTREXATE SODIUM
     Route: 048
  17. ORENCIA [Suspect]
     Active Substance: ABATACEPT
     Indication: RHEUMATOID ARTHRITIS
     Route: 042
     Dates: start: 201204, end: 2014
  18. LANTUS [Concomitant]
     Active Substance: INSULIN GLARGINE
  19. RAMIPRIL. [Concomitant]
     Active Substance: RAMIPRIL
  20. PLAQUENIL [Suspect]
     Active Substance: HYDROXYCHLOROQUINE SULFATE
     Indication: RHEUMATOID ARTHRITIS
     Route: 048
     Dates: start: 2009, end: 2014
  21. ENBREL [Suspect]
     Active Substance: ETANERCEPT
     Route: 058
  22. ACTEMRA [Suspect]
     Active Substance: TOCILIZUMAB
     Indication: RHEUMATOID ARTHRITIS
     Route: 042
  23. ASA ARTHRITIS STRENGTH ASPIRIN [Concomitant]
     Active Substance: ASPIRIN

REACTIONS (7)
  - Impaired work ability [Unknown]
  - Condition aggravated [Unknown]
  - Red blood cell sedimentation rate abnormal [Unknown]
  - Drug ineffective [Unknown]
  - Rheumatoid arthritis [Unknown]
  - Drug effect decreased [Unknown]
  - Interstitial lung disease [Not Recovered/Not Resolved]
